FAERS Safety Report 22235767 (Version 1)
Quarter: 2023Q2

REPORT INFORMATION
  Report Type: Spontaneous
  Country: US (occurrence: US)
  Receive Date: 20230420
  Receipt Date: 20230420
  Transmission Date: 20230722
  Serious: No
  Sender: FDA-Public Use
  Company Number: US-MYLANLABS-2023M1035944

PATIENT
  Sex: Female
  Weight: 55.34 kg

DRUGS (2)
  1. FENTANYL TRANSDERMAL SYSTEM [Suspect]
     Active Substance: FENTANYL
     Indication: Pain management
     Dosage: 25 MICROGRAM, QH
     Route: 062
  2. LYRICA [Concomitant]
     Active Substance: PREGABALIN
     Dosage: 25 MICROGRAM AS NEEDED
     Route: 065

REACTIONS (2)
  - Product design issue [Unknown]
  - Drug ineffective [Not Recovered/Not Resolved]

NARRATIVE: CASE EVENT DATE: 20230301
